FAERS Safety Report 7774710-2 (Version None)
Quarter: 2011Q3

REPORT INFORMATION
  Report Type: 
  Country: None (occurrence: None)
  Receive Date: 20110923
  Receipt Date: 20110919
  Transmission Date: 20111222
  Serious: Yes (Hospitalization)
  Sender: FDA-Public Use
  Company Number: NL-ROCHE-803448

PATIENT
  Age: 73 Year
  Sex: Male

DRUGS (3)
  1. OXALIPLATIN [Concomitant]
  2. BEVACIZUMAB [Concomitant]
  3. CAPECITABINE [Suspect]
     Indication: RECTAL CANCER
     Route: 065

REACTIONS (1)
  - ILEITIS [None]
